FAERS Safety Report 19429762 (Version 1)
Quarter: 2021Q2

REPORT INFORMATION
  Report Type: Other
  Country: IT (occurrence: IT)
  Receive Date: 20210617
  Receipt Date: 20210617
  Transmission Date: 20210717
  Serious: Yes (Hospitalization, Other)
  Sender: FDA-Public Use
  Company Number: IT-ROCHE-2846843

PATIENT
  Sex: Female

DRUGS (1)
  1. TRASTUZUMAB. [Suspect]
     Active Substance: TRASTUZUMAB
     Indication: BREAST CANCER
     Route: 065

REACTIONS (11)
  - Embolism venous [Unknown]
  - Diarrhoea [Unknown]
  - Glucose tolerance impaired [Unknown]
  - Vomiting [Unknown]
  - Mucosal inflammation [Unknown]
  - Nausea [Unknown]
  - Leukopenia [Unknown]
  - Ejection fraction decreased [Unknown]
  - Neutropenia [Unknown]
  - Febrile neutropenia [Unknown]
  - Diabetes mellitus [Unknown]
